FAERS Safety Report 19490368 (Version 2)
Quarter: 2021Q4

REPORT INFORMATION
  Report Type: Spontaneous
  Country: US (occurrence: US)
  Receive Date: 20210705
  Receipt Date: 20211203
  Transmission Date: 20220303
  Serious: Yes (Hospitalization)
  Sender: FDA-Public Use
  Company Number: US-NOVOPROD-825161

PATIENT
  Age: 40 Year
  Sex: Female
  Weight: 81.646 kg

DRUGS (8)
  1. VAGIFEM [Suspect]
     Active Substance: ESTRADIOL
     Indication: Endometriosis
     Dosage: UNK
     Route: 065
     Dates: start: 20190503
  2. ELAGOLIX [Suspect]
     Active Substance: ELAGOLIX
     Indication: Endometriosis
     Dosage: UNK
     Route: 048
     Dates: start: 20190503
  3. ACETAMINOPHEN\HYDROCODONE [Concomitant]
     Active Substance: ACETAMINOPHEN\HYDROCODONE
     Indication: Endometriosis
     Dosage: 5/325MG
     Route: 048
     Dates: start: 20190531
  4. BENADRYL [Concomitant]
     Active Substance: DIPHENHYDRAMINE HYDROCHLORIDE
     Indication: Insomnia
     Dosage: 50 MG
     Route: 048
     Dates: start: 201508
  5. TRAZODONE [Concomitant]
     Active Substance: TRAZODONE HYDROCHLORIDE
     Indication: Insomnia
     Dosage: 50 MG QHS
     Route: 048
     Dates: start: 20190628
  6. PAXIL [Concomitant]
     Active Substance: PAROXETINE HYDROCHLORIDE
     Indication: Anxiety
     Dosage: 10 MG
     Route: 048
     Dates: start: 20190709
  7. ALPRAZOLAM [Concomitant]
     Active Substance: ALPRAZOLAM
     Indication: Anxiety
     Dosage: 0.5 MG, 1-2 TABS EVERY 6 HOURS
     Route: 048
     Dates: start: 20201217
  8. IBUPROFEN [Concomitant]
     Active Substance: IBUPROFEN
     Indication: Product used for unknown indication
     Dosage: 400 MG AS REQUIRED
     Route: 065
     Dates: start: 199701

REACTIONS (1)
  - Food poisoning [Recovered/Resolved]

NARRATIVE: CASE EVENT DATE: 20210320
